FAERS Safety Report 7386498-8 (Version None)
Quarter: 2011Q1

REPORT INFORMATION
  Report Type: 
  Country: None (occurrence: None)
  Receive Date: 20110323
  Receipt Date: 20110308
  Transmission Date: 20110831
  Serious: Yes (Hospitalization, Other)
  Sender: FDA-Public Use
  Company Number: 20110197

PATIENT
  Age: 66 Year
  Sex: Female
  Weight: 74 kg

DRUGS (13)
  1. ALVERINE CITRATE [Concomitant]
  2. FENTANYL [Concomitant]
  3. PROPOFOL [Concomitant]
  4. DEXTROSE 5% [Concomitant]
  5. CLOMIPRAMINE [Concomitant]
  6. METHYLENE BLUE INJECTION, USP (METHYLENE BLUE) 1% [Suspect]
     Indication: PARATHYROID DISORDER
     Dosage: 370  MG/500 ML GLUCOSE (5MG/KG), INTRAVENOUS DRIP
     Route: 041
  7. DOLAGESTRON [Concomitant]
  8. NEOSTIGMINE [Concomitant]
  9. VECURONIUM BROMIDE [Concomitant]
  10. GLYCOPYRROLOATE [Concomitant]
  11. ISOFLURANE [Concomitant]
  12. NITROUS OXIDE [Concomitant]
  13. NORMAL SALINE [Concomitant]

REACTIONS (5)
  - MENTAL STATUS CHANGES POSTOPERATIVE [None]
  - CONFUSIONAL STATE [None]
  - AGITATION [None]
  - OFF LABEL USE [None]
  - DYSKINESIA [None]
